FAERS Safety Report 23848908 (Version 1)
Quarter: 2024Q2

REPORT INFORMATION
  Report Type: Spontaneous
  Country: ES (occurrence: ES)
  Receive Date: 20240513
  Receipt Date: 20240513
  Transmission Date: 20240716
  Serious: Yes (Hospitalization)
  Sender: FDA-Public Use
  Company Number: None

PATIENT
  Age: 64 Year
  Sex: Female

DRUGS (6)
  1. LEVOFLOXACIN [Suspect]
     Active Substance: LEVOFLOXACIN
     Indication: Pneumonia
     Route: 042
     Dates: start: 20240129, end: 20240129
  2. ALGIDOL 650 mg/ 10 mg/ 500 mg GRANULES FOR ORAL SOLUTION [Concomitant]
     Indication: Nasopharyngitis
     Route: 048
     Dates: start: 20240126
  3. TRYPTIZOL 25 mg FILM-COATED TABLETS [Concomitant]
     Indication: Epilepsy
     Route: 048
     Dates: start: 2016
  4. VALPROATE SODIUM (3194SO) [Concomitant]
     Indication: Epilepsy
     Route: 048
     Dates: start: 2010
  5. CEFTRIAXONE [Concomitant]
     Active Substance: CEFTRIAXONE\CEFTRIAXONE SODIUM
     Indication: Pneumonia
     Route: 042
     Dates: start: 20240129, end: 20240208
  6. Levothyroxine sodium (1842SO) [Concomitant]
     Indication: Hypothyroidism
     Route: 048
     Dates: start: 2016

REACTIONS (2)
  - Epilepsy [Recovered/Resolved]
  - Condition aggravated [Recovered/Resolved]

NARRATIVE: CASE EVENT DATE: 20240129
